FAERS Safety Report 13051281 (Version 4)
Quarter: 2017Q1

REPORT INFORMATION
  Report Type: Spontaneous
  Country: US (occurrence: US)
  Receive Date: 20161221
  Receipt Date: 20170321
  Transmission Date: 20170428
  Serious: No
  Sender: FDA-Public Use
  Company Number: US-PFIZER INC-2016579488

PATIENT
  Age: 70 Year
  Sex: Female

DRUGS (107)
  1. SOLU-CORTEF [Concomitant]
     Active Substance: HYDROCORTISONE SODIUM SUCCINATE
     Dosage: 100 MG, UNK [100 MG, INJECTION, IV, AS DIRECTED]
     Route: 042
     Dates: start: 20161130
  2. FUROSEMIDE. [Concomitant]
     Active Substance: FUROSEMIDE
     Dosage: 20 MG, AS NEEDED (20 MG, INJECTION IV, AS DIRECTED, PRN)
     Route: 042
     Dates: start: 20161130
  3. RAPAMUNE [Suspect]
     Active Substance: SIROLIMUS
     Dosage: 4 MG, DAILY
     Route: 048
     Dates: start: 20161128
  4. TACROLIMUS. [Concomitant]
     Active Substance: TACROLIMUS
     Dosage: 2 MG, DAILY [ 1 CAP Q12H]
     Route: 048
  5. ZOFRAN [Concomitant]
     Active Substance: ONDANSETRON HYDROCHLORIDE
     Dosage: 8 MG, AS NEEDED [Q 8H, PRN]
     Route: 042
     Dates: start: 20161129
  6. ACYCLOVIR. [Concomitant]
     Active Substance: ACYCLOVIR
     Dosage: 800 MG, 3X/DAY
     Route: 048
     Dates: start: 20161122
  7. LEVAQUIN [Concomitant]
     Active Substance: LEVOFLOXACIN
     Dosage: 500 MG, DAILY [Q24HR]
     Route: 048
  8. CEFEPIME [Concomitant]
     Active Substance: CEFEPIME HYDROCHLORIDE
     Indication: URINARY TRACT INFECTION
     Dosage: UNK [2 GM 100 ML/HR IVPB Q8HR]
  9. MICAFUNGIN [Concomitant]
     Active Substance: MICAFUNGIN
     Indication: PROPHYLAXIS
     Dosage: UNK [50 MG 100 ML/HR IVPB Q24HR]
  10. SODIUM CHLORIDE. [Concomitant]
     Active Substance: SODIUM CHLORIDE
     Dosage: UNK [SODIUM CHLORIDE 0.9% KCL 40 MEQ, 1000 ML: 1000 ML IV] [50 ML/HR, INFUSE OVER. 20 HR, 1,000 ML]
     Dates: start: 20161204
  11. MAGNESIUM SULFATE. [Concomitant]
     Active Substance: MAGNESIUM SULFATE
     Dosage: 2 G, AS NEEDED [2 GM, IVPB, AS DIRECTED, PRN]
     Route: 042
     Dates: start: 20161122
  12. DEXTROSE SODIUM CHLORIDE [Concomitant]
     Dosage: UNK, AS NEEDED  [CALCIUM CHLORIDE IV + DEXTROSE 5% WATER 100 ML; 500 MG, 5 ML, IVBP, AS DIRECTED]
     Dates: start: 20161122
  13. POTASSIUM CHLORIDE. [Concomitant]
     Active Substance: POTASSIUM CHLORIDE
     Dosage: [20 MEQ IN 100 ML; 20 MEQ, IVBP, AS DIRECTED]UNK, AS NEEDED
     Route: 042
     Dates: start: 20161122
  14. HEPARIN FLUSH [Concomitant]
     Active Substance: HEPARIN SODIUM
     Dosage: 100 IU, DAILY [50 UNITS IV Q12H (10 UNITS/ML) TO LOCK FOLLOWING MAINTENANCE NS FLUSH]
     Route: 042
  15. IMODIUM A-D [Concomitant]
     Active Substance: LOPERAMIDE HYDROCHLORIDE
     Dosage: 2 MG, AS NEEDED [AS DIRECTED, PRN]
     Route: 048
     Dates: start: 20161203
  16. ADRENALIN [Concomitant]
     Active Substance: EPINEPHRINE
     Dosage: 1 MG, AS NEEDED
     Route: 042
     Dates: start: 20161130
  17. ATARAX [Concomitant]
     Active Substance: HYDROXYZINE HYDROCHLORIDE
     Indication: PRURITUS
     Dosage: 20 MG, AS NEEDED [TID]
     Route: 048
     Dates: start: 20161124
  18. ATROPINE. [Concomitant]
     Active Substance: ATROPINE
     Dosage: 1 MG, AS NEEDED  (1 MG, SYRINGE, IV, AS DIRECTED)
     Route: 042
     Dates: start: 20161130
  19. CALCIUM GLUCONATE. [Concomitant]
     Active Substance: CALCIUM GLUCONATE
     Dosage: AS NEEDED 1 GM, 10 ML, IVBP, AS DIRECTED, PRN
     Dates: start: 20161122
  20. MANNITOL. [Concomitant]
     Active Substance: MANNITOL
     Dosage: 12.5 GM, 50 ML, INJECTION, IV, AS DIRECTED
     Route: 042
     Dates: start: 20161130
  21. PROTONIX [Concomitant]
     Active Substance: PANTOPRAZOLE SODIUM
     Dosage: 40 MG, DAILY
     Route: 048
     Dates: start: 20161123
  22. CAPHOSOL [Concomitant]
     Active Substance: CALCIUM CHLORIDE\SODIUM CHLORIDE\SODIUM PHOSPHATE, DIBASIC, ANHYDROUS\SODIUM PHOSPHATE, MONOBASIC, ANHYDROUS
     Dosage: 360 ML, DAILY [90 ML PO Q6H SWISH AND SPIT FOUR TIMES DAILY]
     Route: 048
     Dates: start: 20161122
  23. NEUPOGEN [Concomitant]
     Active Substance: FILGRASTIM
     Dosage: 1 ML, DAILY
     Route: 058
     Dates: start: 20161207
  24. DEXTROSE SODIUM CHLORIDE [Concomitant]
     Dosage: UNK, AS NEEDED  [CALCIUM CHLORIDE IV + DEXTROSE 5% WATER 250 ML; 1.5 GM, 15 ML, IVBP, AS DIRECTED]
     Dates: start: 20161122
  25. POTASSIUM PHOSPHATES [Concomitant]
     Active Substance: POTASSIUM PHOSPHATE, DIBASIC\POTASSIUM PHOSPHATE, MONOBASIC
     Indication: ELECTROLYTE IMBALANCE
     Dosage: UNK UNK, AS NEEDED [15 ML MMOL, 5 ML, IVPB, AS DIRECTED]
     Route: 042
     Dates: start: 20161122
  26. LOPRESSOR [Concomitant]
     Active Substance: METOPROLOL TARTRATE
     Dosage: 25 MG, 2X/DAY
     Route: 048
  27. ONDANSETRON [Concomitant]
     Active Substance: ONDANSETRON
     Indication: NAUSEA
     Dosage: 8 MG, AS NEEDED [Q8H, PRN]
     Route: 048
     Dates: start: 20161129
  28. ONDANSETRON [Concomitant]
     Active Substance: ONDANSETRON
     Indication: VOMITING
  29. CALCIUM GLUCONATE. [Concomitant]
     Active Substance: CALCIUM GLUCONATE
     Indication: ELECTROLYTE IMBALANCE
     Dosage: AS NEEDED (CALCIUM GLUCONATE IV + SODIUM CHLORIDE 0.9% 100 ML: 2 GM, 20 ML, IVBP, AS DIRECTED)
     Dates: start: 20161122
  30. RAPAMUNE [Suspect]
     Active Substance: SIROLIMUS
     Dosage: 0.5 MG, UNK (Q46 HR)
     Route: 048
  31. RAPAMUNE [Suspect]
     Active Substance: SIROLIMUS
     Dosage: 0.25 MG, DAILY (0.5 MG, TAB, Q48HR)
     Route: 048
     Dates: start: 20161207
  32. NOXAFIL [Concomitant]
     Active Substance: POSACONAZOLE
     Dosage: UNK
  33. TACROLIMUS. [Concomitant]
     Active Substance: TACROLIMUS
     Dosage: 1 MG, DAILY [1 CAP Q 12H]
     Route: 048
  34. ZOFRAN [Concomitant]
     Active Substance: ONDANSETRON HYDROCHLORIDE
     Indication: NAUSEA
     Dosage: UNK [ZOFRAN + SODIUM CHLORIDE 0.9% 50 ML: 16 MG 174 ML/HR IV CHEMO Q24HR]
  35. LOSARTAN. [Concomitant]
     Active Substance: LOSARTAN
     Dosage: 25 MG, 2X/DAY
     Route: 048
  36. CEFEPIME [Concomitant]
     Active Substance: CEFEPIME HYDROCHLORIDE
     Indication: FEBRILE NEUTROPENIA
  37. ATIVAN [Concomitant]
     Active Substance: LORAZEPAM
     Indication: VOMITING
     Dosage: 1 MG, AS NEEDED [ONCE]
     Dates: start: 20161129
  38. CAPHOSOL [Concomitant]
     Active Substance: CALCIUM CHLORIDE\SODIUM CHLORIDE\SODIUM PHOSPHATE, DIBASIC, ANHYDROUS\SODIUM PHOSPHATE, MONOBASIC, ANHYDROUS
     Dosage: 120 ML, DAILY [30 ML, SOLN, PO, Q6H] [SWISH AND SPLIT FOUR TIMES DAILY]
     Route: 048
  39. SODIUM CHLORIDE. [Concomitant]
     Active Substance: SODIUM CHLORIDE
     Dosage: UNK [0.9% 1000ML; 1000ML 20ML/HR IV]
     Route: 042
     Dates: start: 20161122
  40. SODIUM CHLORIDE. [Concomitant]
     Active Substance: SODIUM CHLORIDE
     Dosage: UNK [0.9% KCL MEQ 1,000 ML; 1000 ML 50 ML/HR IV]
     Route: 042
  41. BENADRYL [Concomitant]
     Active Substance: DIPHENHYDRAMINE HYDROCHLORIDE
     Dosage: 50 MG, AS NEEDED  [AS DIRECTED]
     Route: 042
     Dates: start: 20161130
  42. POTASSIUM PHOSPHATES [Concomitant]
     Active Substance: POTASSIUM PHOSPHATE, DIBASIC\POTASSIUM PHOSPHATE, MONOBASIC
     Dosage: UNK, AS NEEDED  [30 ML MMOL, 10 ML, IVPB, AS DIRECTED]
     Route: 042
     Dates: start: 20161122
  43. POTASSIUM PHOSPHATES [Concomitant]
     Active Substance: POTASSIUM PHOSPHATE, DIBASIC\POTASSIUM PHOSPHATE, MONOBASIC
     Dosage: UNK  [15MMOL 33.33 ML/HR IVPB AS DIRECTED]
     Route: 042
  44. HEPARIN FLUSH [Concomitant]
     Active Substance: HEPARIN SODIUM
     Dosage: 50 IU, AS NEEDED  [50 UNITS, SOLN, IV, AS DIRECTED]
     Route: 042
     Dates: start: 20161123
  45. PARACETAMOL [Concomitant]
     Active Substance: ACETAMINOPHEN
     Indication: PYREXIA
     Dosage: 650 MG, AS NEEDED [Q6H, PRN]
     Route: 048
     Dates: start: 20161206
  46. RAPAMUNE [Suspect]
     Active Substance: SIROLIMUS
     Dosage: 0.5 MG, 1X/DAY
     Route: 048
  47. ACYCLOVIR. [Concomitant]
     Active Substance: ACYCLOVIR
     Indication: HERPES SIMPLEX
     Dosage: 1600 MG, DAILY [ 800 MG Q 12H]
     Route: 048
     Dates: start: 20161122
  48. CEFEPIME [Concomitant]
     Active Substance: CEFEPIME HYDROCHLORIDE
     Indication: SEPSIS
  49. MICAFUNGIN [Concomitant]
     Active Substance: MICAFUNGIN
     Indication: BONE MARROW TRANSPLANT
     Dosage: UNK, [50 MG, 5 ML, IVPB, Q24HR, X 14 DAY(S)]
     Route: 042
     Dates: start: 20161122, end: 20161206
  50. ACTIGALL [Concomitant]
     Active Substance: URSODIOL
     Dosage: 300 MG, UNK [WITH MEALS]
     Route: 048
     Dates: start: 20161122
  51. AMBIEN [Concomitant]
     Active Substance: ZOLPIDEM TARTRATE
     Indication: INSOMNIA
     Dosage: 5 MG, AS NEEDED [AT BEDTIME, PRN]
     Route: 048
     Dates: start: 20161122
  52. BENADRYL [Concomitant]
     Active Substance: DIPHENHYDRAMINE HYDROCHLORIDE
     Dosage: 50 UNK, UNK [AS DIRECTED]
     Route: 042
     Dates: start: 20161130
  53. DEXTROSE SODIUM CHLORIDE [Concomitant]
     Indication: ELECTROLYTE IMBALANCE
     Dosage: UNK [2 MG, SOLN, CATH INSTILL, AS DIRECTED]
     Route: 042
     Dates: start: 20161122
  54. DEXTROSE SODIUM CHLORIDE [Concomitant]
     Dosage: UNK [CALCIUM CHLORIDE IV + DEXTROSE 5% WATER 250 ML; 1.5 GM, 15 ML, IVPB, PER DIRECTION, X 50 DOSE]
     Route: 042
     Dates: start: 20161122
  55. POTASSIUM CHLORIDE. [Concomitant]
     Active Substance: POTASSIUM CHLORIDE
     Dosage: 20 MEQ, 2X/DAY
     Route: 048
  56. POTASSIUM CHLORIDE. [Concomitant]
     Active Substance: POTASSIUM CHLORIDE
     Dosage: 20 MEQ, 2X/DAY
     Route: 048
     Dates: start: 20161207
  57. LOPRESSOR [Concomitant]
     Active Substance: METOPROLOL TARTRATE
     Dosage: 25 MG, 2X/DAY
     Route: 048
  58. LOPRESSOR [Concomitant]
     Active Substance: METOPROLOL TARTRATE
     Dosage: 37.7 MG, 2X/DAY [37.5 MG PO BID HOLD FOR HR {80, SBP {120]
     Route: 048
  59. HEPARIN FLUSH [Concomitant]
     Active Substance: HEPARIN SODIUM
     Dosage: 100 IU, DAILY  [50 UNITS, SOLN, IV, Q12H, ROUTINE]
     Route: 042
     Dates: start: 20161123
  60. NYSTATIN. [Concomitant]
     Active Substance: NYSTATIN
     Dosage: UNK  [500,000 UNITS, 5 ML, SUSP, PO, 4X/DAY, ROUTINE] [SWISH AND SWALLOW]
     Dates: start: 20161208
  61. METOPROLOL. [Concomitant]
     Active Substance: METOPROLOL
     Dosage: 37.5 MG, 2X/DAY
  62. RAPAMUNE [Suspect]
     Active Substance: SIROLIMUS
     Dosage: 2 MG, 1X/DAY
     Route: 048
  63. ZOFRAN [Concomitant]
     Active Substance: ONDANSETRON HYDROCHLORIDE
     Indication: VOMITING
     Dosage: UNK, [ZOFRAN + SODIUM CHLORIDE 0.9 % 50 ML; 16 MG, 8 ML, INJECTION, IV-CHEMO, Q 24HR, X 6 DOSE]
     Route: 042
     Dates: start: 20161122, end: 20161128
  64. ACYCLOVIR. [Concomitant]
     Active Substance: ACYCLOVIR
     Indication: MOUTH ULCERATION
     Dosage: 800 MG, 3X/DAY
     Route: 048
  65. FLUDARABINE [Concomitant]
     Active Substance: FLUDARABINE PHOSPHATE
     Dosage: UNK [40 MG, 1.6 ML, INJECTION, IV CHEMO, Q24HR, X 5 DOSE]
     Route: 042
     Dates: start: 20161122, end: 20161127
  66. ATIVAN [Concomitant]
     Active Substance: LORAZEPAM
     Dosage: 1 MG, AS NEEDED [1MG, ONCE]
     Dates: start: 20161129
  67. CAPHOSOL [Concomitant]
     Active Substance: CALCIUM CHLORIDE\SODIUM CHLORIDE\SODIUM PHOSPHATE, DIBASIC, ANHYDROUS\SODIUM PHOSPHATE, MONOBASIC, ANHYDROUS
     Dosage: 90 ML, DAILY [Q8H SWISH AND SPLIT FOR TIMES DAILY]
     Route: 048
  68. CAPHOSOL [Concomitant]
     Active Substance: CALCIUM CHLORIDE\SODIUM CHLORIDE\SODIUM PHOSPHATE, DIBASIC, ANHYDROUS\SODIUM PHOSPHATE, MONOBASIC, ANHYDROUS
     Dosage: 360 ML, DAILY [30 ML PO, Q6H, ROUTINE SWISH AND SPIT FOUR TIMES DAILY]
     Route: 048
     Dates: start: 20161122
  69. MAGNESIUM SULFATE. [Concomitant]
     Active Substance: MAGNESIUM SULFATE
     Indication: ELECTROLYTE IMBALANCE
     Dosage: UNK [2 GM 50 ML/HR IVPB]
     Route: 042
  70. ALKERAN [Concomitant]
     Active Substance: MELPHALAN
     Dosage: UNK, [ALKERAN IV + SODIUM CHLORIDE 0.9% 500 ML: 200 MG, 44 ML]
     Route: 042
     Dates: start: 20161127, end: 20161127
  71. BENADRYL [Concomitant]
     Active Substance: DIPHENHYDRAMINE HYDROCHLORIDE
     Indication: HYPERSENSITIVITY
     Dosage: 25 MG, UNK
     Route: 042
     Dates: start: 20161127, end: 20161127
  72. NEUPOGEN [Concomitant]
     Active Substance: FILGRASTIM
     Dosage: 300 UG, DAILY [300 MCG 0 ML/HR SUBCUTANEOUS SYRINGE QDAY]
     Route: 058
  73. PROCHLORPERAZINE. [Concomitant]
     Active Substance: PROCHLORPERAZINE
     Indication: VOMITING
  74. SODIUM PHOSPHATE [Concomitant]
     Active Substance: SODIUM PHOSPHATE
     Dosage: UNK, AS NEEDED  [30 MMOL, 10 ML, IVPB, AS DIRECTED]
     Route: 042
     Dates: start: 20161122
  75. VORICONAZOLE. [Concomitant]
     Active Substance: VORICONAZOLE
     Dosage: 400 MG, DAILY [Q12H]
     Route: 048
  76. ENALAPRIL [Concomitant]
     Active Substance: ENALAPRIL
     Dosage: AS NEEDED
  77. RAPAMUNE [Suspect]
     Active Substance: SIROLIMUS
     Indication: STEM CELL TRANSPLANT
     Dosage: 12 MG, (ONCE)
     Route: 048
     Dates: start: 20161127, end: 20161127
  78. TACROLIMUS. [Concomitant]
     Active Substance: TACROLIMUS
     Dosage: UNK [TACROLIMUS 0.8 MG + SODIUM CHLORIDE 0.9% NON-PVC 80 ML; 50 ML 3.33 ML/HR IV-CHEMO]
     Route: 042
  79. CEFEPIME [Concomitant]
     Active Substance: CEFEPIME HYDROCHLORIDE
     Indication: CYSTITIS
     Dosage: 6 G, DAILY [2 GM, IVPB, Q8HR, X 10 DAY(S)]
     Route: 042
     Dates: start: 20161123, end: 20161203
  80. ATIVAN [Concomitant]
     Active Substance: LORAZEPAM
     Indication: NAUSEA
     Dosage: 0.5 MG, DAILY
     Route: 042
  81. SODIUM CHLORIDE. [Concomitant]
     Active Substance: SODIUM CHLORIDE
     Dosage: UNK [0.9% 1000ML; 1000ML 20ML/HR IV]
     Route: 042
     Dates: start: 20161122
  82. SODIUM PHOSPHATE [Concomitant]
     Active Substance: SODIUM PHOSPHATE
     Indication: ELECTROLYTE IMBALANCE
     Dosage: UNK [15 MMOL, 5 ML, IVPB, AS DIRECTED, PRN]
     Route: 042
     Dates: start: 20161122
  83. IMODIUM A-D [Concomitant]
     Active Substance: LOPERAMIDE HYDROCHLORIDE
     Indication: DIARRHOEA
     Dosage: 2 MG, AS NEEDED [AS DIRECTED ]
     Route: 048
  84. TACROLIMUS. [Concomitant]
     Active Substance: TACROLIMUS
     Dosage: UNK [1 MG [0.02 MG/KG] + SODIUM CHLORIDE 0.9% NON-PVC 100 ML, IV]
     Route: 042
     Dates: start: 20161122
  85. TACROLIMUS. [Concomitant]
     Active Substance: TACROLIMUS
     Dosage: UNK [TACROLIMUS 0.8 MG+ SODIUM CHLORIDE 0.9% NON-PVC 80 ML: 80 ML, IV-CHEMO]
     Route: 042
     Dates: start: 20161129
  86. ACYCLOVIR. [Concomitant]
     Active Substance: ACYCLOVIR
     Indication: PROPHYLAXIS
     Dosage: 800 MG, 2X/DAY
     Route: 048
  87. DECADRON [Concomitant]
     Active Substance: DEXAMETHASONE
     Dosage: 10 MG, UNK
     Route: 042
     Dates: start: 20161127, end: 20161127
  88. DEXTROSE SODIUM CHLORIDE [Concomitant]
     Dosage: UNK, AS NEEDED [CALCIUM CHLORIDE IV + SODIUM CHLORIDE 0.9% 50 ML; 1 GM; 10 ML, IVPB, AS DIRECTED]
     Dates: start: 20161122
  89. POTASSIUM CHLORIDE. [Concomitant]
     Active Substance: POTASSIUM CHLORIDE
     Indication: ELECTROLYTE IMBALANCE
     Dosage: UNK, AS NEEDED [20 MEQ IN 100 ML: 20 MEQ, IVBP, AS DIRECTED]
     Route: 042
     Dates: start: 20161122
  90. SOLU-CORTEF [Concomitant]
     Active Substance: HYDROCORTISONE SODIUM SUCCINATE
     Dosage: 50 MG, AS NEEDED [AS DIRECTED, OTHER]
     Route: 042
     Dates: start: 20161130
  91. FUROSEMIDE. [Concomitant]
     Active Substance: FUROSEMIDE
     Dosage: 20 MG, UNK [20 MG, INJECTION IV, AS DIRECTED, X1 DOSE]
     Route: 042
     Dates: start: 20161130
  92. HYDRALAZINE [Concomitant]
     Active Substance: HYDRALAZINE HYDROCHLORIDE
     Dosage: AS NEEDED
  93. CEFEPIME [Concomitant]
     Active Substance: CEFEPIME HYDROCHLORIDE
     Indication: PYELONEPHRITIS
     Dosage: 6 G, DAILY [2 GM, IVPB, Q8HR]
     Route: 042
     Dates: start: 20161206
  94. MAGNESIUM SULFATE. [Concomitant]
     Active Substance: MAGNESIUM SULFATE
     Dosage: 4 G, AS NEEDED [4 GM, IVPB, AS DIRECTED, PRN]
     Route: 042
     Dates: start: 20161122
  95. BENADRYL [Concomitant]
     Active Substance: DIPHENHYDRAMINE HYDROCHLORIDE
     Dosage: 25 MG, AS NEEDED  [TID]
     Route: 042
     Dates: start: 20161125
  96. NEUPOGEN [Concomitant]
     Active Substance: FILGRASTIM
     Dosage: UNK, DAILY [300 MCG, 1 ML, INJECTION, SUBCUTANEOUS SYRINGE,  QDAY]
     Route: 058
     Dates: start: 20161207
  97. SENOKOT-S [Concomitant]
     Active Substance: DOCUSATE SODIUM\SENNOSIDES
     Indication: CONSTIPATION
     Dosage: 2 DF, AS NEEDED [2 TAB, PO Q12HR, PRN]
     Route: 048
     Dates: start: 20161122
  98. DEXTROSE SODIUM CHLORIDE [Concomitant]
     Dosage: UNK, AS NEEDED  [CALCIUM CHLORIDE IV + SODIUM CHLORIDE 0.9% 100 ML; 2 GM; 20 ML, IVPB, AS DIRECTED]
     Dates: start: 20161122
  99. DEXTROSE SODIUM CHLORIDE [Concomitant]
     Dosage: UNK, AS NEEDED  [CALCIUM CHLORIDE IV + DEXTROSE 5% WATER 150 ML: 1 GM, 10 ML, IVPB, AS DIRECTED]
     Route: 042
     Dates: start: 20161122
  100. POTASSIUM CHLORIDE. [Concomitant]
     Active Substance: POTASSIUM CHLORIDE
     Dosage: 10 MEQ, 2X/DAY
     Route: 048
  101. PROCHLORPERAZINE. [Concomitant]
     Active Substance: PROCHLORPERAZINE
     Indication: NAUSEA
     Dosage: 10 MG, AS NEEDED  [10 MG, INJECTION, IV, Q6HR, PRN] [IF UNABLE TO TAKE PO]
     Route: 042
     Dates: start: 20161122
  102. LOPRESSOR [Concomitant]
     Active Substance: METOPROLOL TARTRATE
     Dosage: 37.5 MG, 2X/DAY [ROUTINE] [HOLD FOR HR{60, SBP {120]
     Route: 048
     Dates: start: 20161124
  103. NYSTATIN. [Concomitant]
     Active Substance: NYSTATIN
     Dosage: UNK [100,000 UNITS/ML ORAL SUSPENSION- 500,000 UNITS PO 4X/DAY SWISH AND SWALLOW]
  104. POSACONAZOLE [Concomitant]
     Active Substance: POSACONAZOLE
     Indication: PROPHYLAXIS
     Dosage: 300 MG, DAILY
     Route: 048
  105. POSACONAZOLE [Concomitant]
     Active Substance: POSACONAZOLE
     Dosage: 300 MG, DAILY
     Route: 048
     Dates: start: 20161201
  106. APRESOLINE HYDROCHLORIDE [Concomitant]
     Active Substance: HYDRALAZINE HYDROCHLORIDE
     Indication: HYPERTENSION
     Dosage: 10 MG, AS NEEDED [Q6HR]
     Route: 042
     Dates: start: 20161122
  107. CATHFLO ACTIVASE [Concomitant]
     Active Substance: ALTEPLASE
     Dosage: 2 MG, AS NEEDED [2 MG, SOLN, CATH INSTILL, AS DIRECTED]
     Dates: start: 20161123

REACTIONS (9)
  - Product use issue [Unknown]
  - Diarrhoea [Unknown]
  - Rash [Unknown]
  - Epistaxis [Unknown]
  - Mucosal inflammation [Unknown]
  - Thinking abnormal [Unknown]
  - Asthenia [Unknown]
  - Mouth ulceration [Unknown]
  - Somnolence [Unknown]
